FAERS Safety Report 8217364-3 (Version None)
Quarter: 2012Q1

REPORT INFORMATION
  Report Type: 
  Country: None (occurrence: None)
  Receive Date: 20120319
  Receipt Date: 20120309
  Transmission Date: 20120608
  Serious: Yes (Other)
  Sender: FDA-Public Use
  Company Number: US-BAYER-201036660NA

PATIENT
  Age: 27 Year
  Sex: Female
  Weight: 73.923 kg

DRUGS (4)
  1. ALBUTEROL [Concomitant]
  2. MIRENA [Suspect]
     Indication: CONTRACEPTION
     Dosage: 20 ?G/D, CONT
     Route: 015
     Dates: start: 20100913
  3. KLONOPIN [Concomitant]
     Dosage: 1 MG, UNK
  4. CYMBALTA [Concomitant]

REACTIONS (6)
  - MOOD SWINGS [None]
  - PELVIC PAIN [None]
  - HYPERHIDROSIS [None]
  - ANXIETY [None]
  - SUICIDAL IDEATION [None]
  - POST PROCEDURAL HAEMORRHAGE [None]
